FAERS Safety Report 5344117-6 (Version None)
Quarter: 2007Q2

REPORT INFORMATION
  Report Type: 
  Country: None (occurrence: None)
  Receive Date: 20070604
  Receipt Date: 20070525
  Transmission Date: 20071010
  Serious: Yes (Hospitalization)
  Sender: FDA-Public Use
  Company Number: JP-ELI_LILLY_AND_COMPANY-JP200705007608

PATIENT
  Age: 41 Year
  Sex: Female

DRUGS (2)
  1. ZYPREXA [Suspect]
     Indication: BIPOLAR I DISORDER
     Route: 048
  2. DEPAKENE [Concomitant]
     Indication: BIPOLAR I DISORDER
     Route: 048
     Dates: end: 20070524

REACTIONS (1)
  - GRANULOCYTE COUNT DECREASED [None]
